FAERS Safety Report 10509017 (Version 1)
Quarter: 2014Q4

REPORT INFORMATION
  Report Type: Spontaneous
  Country: US (occurrence: US)
  Receive Date: 20141009
  Receipt Date: 20141009
  Transmission Date: 20150528
  Serious: Yes (Hospitalization, Other)
  Sender: FDA-Public Use
  Company Number: US-ABBVIE-14P-163-1291256-00

PATIENT
  Age: 58 Year
  Sex: Male

DRUGS (1)
  1. ANDROGEL [Suspect]
     Active Substance: TESTOSTERONE
     Indication: BLOOD TESTOSTERONE DECREASED
     Route: 050
     Dates: end: 20120614

REACTIONS (9)
  - Loss of employment [Unknown]
  - Lung disorder [Recovering/Resolving]
  - Anhedonia [Unknown]
  - Economic problem [Unknown]
  - Pulmonary embolism [Not Recovered/Not Resolved]
  - Fear [Unknown]
  - Pain [Unknown]
  - Social problem [Unknown]
  - Anxiety [Unknown]
